FAERS Safety Report 21961703 (Version 3)
Quarter: 2023Q2

REPORT INFORMATION
  Report Type: Report from Study
  Country: US (occurrence: None)
  Receive Date: 20230207
  Receipt Date: 20230531
  Transmission Date: 20230721
  Serious: Yes (Hospitalization)
  Sender: FDA-Public Use
  Company Number: US-ROCHE-3277011

PATIENT
  Age: 64 Year
  Sex: Female
  Weight: 98.9 kg

DRUGS (20)
  1. BEVACIZUMAB [Suspect]
     Active Substance: BEVACIZUMAB
     Indication: Ovarian epithelial cancer
     Dosage: ON 11/JAN/2023, SHE RECEIVED LAST DOSE OF BEVACIZUMAB PRIOR TO SECOND OCCURRENCE AE?ON 05/DEC/2022,
     Route: 042
     Dates: start: 20220629
  2. BEVACIZUMAB [Suspect]
     Active Substance: BEVACIZUMAB
     Indication: Fallopian tube cancer
  3. BEVACIZUMAB [Suspect]
     Active Substance: BEVACIZUMAB
     Indication: Malignant peritoneal neoplasm
  4. LUVELTAMAB TAZEVIBULIN [Suspect]
     Active Substance: LUVELTAMAB TAZEVIBULIN
     Indication: Ovarian epithelial cancer
     Dosage: ON 11/JAN/2023, SHE RECEIVED LAST DOSE OF STRO-002 PRIOR TO SECOND OCCURRENCE AE?ON 05/DEC/2022, SHE
     Route: 042
     Dates: start: 20220629
  5. LUVELTAMAB TAZEVIBULIN [Suspect]
     Active Substance: LUVELTAMAB TAZEVIBULIN
     Indication: Fallopian tube cancer
  6. LUVELTAMAB TAZEVIBULIN [Suspect]
     Active Substance: LUVELTAMAB TAZEVIBULIN
     Indication: Malignant peritoneal neoplasm
  7. NORVASC [Concomitant]
     Active Substance: AMLODIPINE BESYLATE
  8. LEXAPRO [Concomitant]
     Active Substance: ESCITALOPRAM OXALATE
  9. GLUCOPHAGE XR [Concomitant]
     Active Substance: METFORMIN HYDROCHLORIDE
  10. ZYLOPRIM [Concomitant]
     Active Substance: ALLOPURINOL
  11. MARINOL [Concomitant]
     Active Substance: DRONABINOL
  12. PRILOSEC [Concomitant]
     Active Substance: OMEPRAZOLE MAGNESIUM
  13. OXYCODONE HYDROCHLORIDE [Concomitant]
     Active Substance: OXYCODONE HYDROCHLORIDE
  14. WIXELA INHUB [Concomitant]
     Active Substance: FLUTICASONE PROPIONATE\SALMETEROL XINAFOATE
  15. DIOVAN HCT [Concomitant]
     Active Substance: HYDROCHLOROTHIAZIDE\VALSARTAN
  16. GABAPENTIN [Concomitant]
     Active Substance: GABAPENTIN
  17. NORVASC [Concomitant]
     Active Substance: AMLODIPINE BESYLATE
  18. LIPITOR [Concomitant]
     Active Substance: ATORVASTATIN CALCIUM
  19. DETROL [Concomitant]
     Active Substance: TOLTERODINE TARTRATE
  20. ARMOUR THYROID [Concomitant]
     Active Substance: THYROID, PORCINE

REACTIONS (2)
  - Acute kidney injury [Recovered/Resolved]
  - Acute kidney injury [Recovered/Resolved]

NARRATIVE: CASE EVENT DATE: 20221225
